FAERS Safety Report 4398372-X (Version None)
Quarter: 2004Q3

REPORT INFORMATION
  Report Type: 
  Country: None (occurrence: None)
  Receive Date: 20040713
  Receipt Date: 20040702
  Transmission Date: 20050211
  Serious: Yes (Death, Hospitalization)
  Sender: FDA-Public Use
  Company Number: JP-JNJFOC-20040701584

PATIENT
  Age: 54 Year
  Sex: Female

DRUGS (5)
  1. LEVOFLOXACIN (LEVOFLOXACIN) TABLETS [Suspect]
     Indication: ABDOMINAL PAIN
     Dosage: ORAL
     Route: 048
     Dates: start: 20020507
  2. LEVOFLOXACIN (LEVOFLOXACIN) TABLETS [Suspect]
     Indication: DIARRHOEA
     Dosage: ORAL
     Route: 048
     Dates: start: 20020507
  3. CEFTRIAXONE (CEFTRIAXONE) INJECTION [Concomitant]
  4. LOPERAMIDE HYDROCHLORIDE [Concomitant]
  5. INSULIN [Concomitant]

REACTIONS (5)
  - GASTROENTERITIS BACTERIAL [None]
  - GASTROINTESTINAL NECROSIS [None]
  - MULTI-ORGAN FAILURE [None]
  - PERITONITIS [None]
  - STAPHYLOCOCCAL INFECTION [None]
